FAERS Safety Report 7946864-6 (Version None)
Quarter: 2011Q4

REPORT INFORMATION
  Report Type: 
  Country: None (occurrence: None)
  Receive Date: 20111129
  Receipt Date: 20111122
  Transmission Date: 20120403
  Serious: Yes (Other)
  Sender: FDA-Public Use
  Company Number: PHHY2011FR103148

PATIENT
  Sex: Male

DRUGS (3)
  1. SPIRIVA [Concomitant]
  2. BECLOMETHASONE DIPROPIONATE [Concomitant]
  3. ONBREZ [Suspect]
     Indication: CHRONIC OBSTRUCTIVE PULMONARY DISEASE
     Dosage: 150 UG, QD
     Dates: start: 20111101

REACTIONS (2)
  - TACHYARRHYTHMIA [None]
  - ATRIAL TACHYCARDIA [None]
